FAERS Safety Report 19278146 (Version 2)
Quarter: 2021Q3

REPORT INFORMATION
  Report Type: Report from Study
  Country: None (occurrence: JP)
  Receive Date: 20210520
  Receipt Date: 20210908
  Transmission Date: 20211014
  Serious: Yes (Other)
  Sender: FDA-Public Use
  Company Number: JP-ABBVIE-20P-087-3227593-00

PATIENT
  Age: 53 Year
  Sex: Male

DRUGS (1)
  1. LEUPLIN [Suspect]
     Active Substance: LEUPROLIDE ACETATE
     Indication: BULBOSPINAL MUSCULAR ATROPHY CONGENITAL
     Dosage: 11.25 MILLIGRAM, Q3MONTHS
     Route: 058
     Dates: start: 20180419

REACTIONS (2)
  - Diabetes mellitus [Recovering/Resolving]
  - Diabetes mellitus [Recovered/Resolved]

NARRATIVE: CASE EVENT DATE: 20180621
